FAERS Safety Report 6817675-X (Version None)
Quarter: 2010Q3

REPORT INFORMATION
  Report Type: 
  Country: None (occurrence: None)
  Receive Date: 20100706
  Receipt Date: 20100629
  Transmission Date: 20110219
  Serious: Yes (Congenital Anomaly, Other)
  Sender: FDA-Public Use
  Company Number: US-PFIZER INC-2010081471

PATIENT

DRUGS (7)
  1. VIRACEPT [Suspect]
     Indication: HIV TEST POSITIVE
     Route: 064
  2. RETROVIR [Suspect]
     Indication: HIV TEST POSITIVE
     Route: 064
  3. SUSTIVA [Suspect]
     Indication: HIV TEST POSITIVE
     Route: 064
  4. ZIAGEN [Suspect]
     Indication: HIV TEST POSITIVE
     Route: 064
  5. EPIVIR [Suspect]
     Indication: HIV TEST POSITIVE
     Route: 064
  6. VIREAD [Suspect]
     Indication: HIV TEST POSITIVE
     Route: 064
  7. EMTRICITABINE [Suspect]
     Indication: HIV TEST POSITIVE
     Route: 064

REACTIONS (2)
  - DRUG EXPOSURE DURING PREGNANCY [None]
  - GASTROSCHISIS [None]
